FAERS Safety Report 20010235 (Version 2)
Quarter: 2021Q4

REPORT INFORMATION
  Report Type: Spontaneous
  Country: IT (occurrence: IT)
  Receive Date: 20211028
  Receipt Date: 20211104
  Transmission Date: 20220303
  Serious: Yes (Death, Other)
  Sender: FDA-Public Use
  Company Number: None

PATIENT
  Age: 65 Year
  Sex: Female
  Weight: 63 kg

DRUGS (6)
  1. METHOTREXATE SODIUM [Suspect]
     Active Substance: METHOTREXATE SODIUM
     Indication: Neoplasm malignant
     Dosage: 60 MG, CYCLIC
     Dates: start: 20210806, end: 20210806
  2. METHOTREXATE SODIUM [Suspect]
     Active Substance: METHOTREXATE SODIUM
     Dosage: 60 MG, CYCLIC
     Dates: start: 20210813, end: 20210813
  3. FLUOROURACIL [Suspect]
     Active Substance: FLUOROURACIL
     Indication: Neoplasm malignant
     Dosage: 950 MG, CYCLIC
     Route: 042
     Dates: start: 20210806, end: 20210806
  4. FLUOROURACIL [Suspect]
     Active Substance: FLUOROURACIL
     Dosage: 950 MG, CYCLIC
     Route: 042
     Dates: start: 20210813, end: 20210813
  5. CYCLOPHOSPHAMIDE [Suspect]
     Active Substance: CYCLOPHOSPHAMIDE
     Indication: Neoplasm malignant
     Dosage: 900 MG, CYCLIC
     Route: 042
     Dates: start: 20210806, end: 20210806
  6. CYCLOPHOSPHAMIDE [Suspect]
     Active Substance: CYCLOPHOSPHAMIDE
     Dosage: 900 MG, CYCLIC
     Route: 042
     Dates: start: 20210813, end: 20210813

REACTIONS (3)
  - Stomatitis [Fatal]
  - Malaise [Fatal]
  - Diarrhoea [Fatal]

NARRATIVE: CASE EVENT DATE: 20210814
